FAERS Safety Report 24691749 (Version 1)
Quarter: 2024Q4

REPORT INFORMATION
  Report Type: Spontaneous
  Country: US (occurrence: None)
  Receive Date: 20241203
  Receipt Date: 20241203
  Transmission Date: 20250115
  Serious: Yes (Hospitalization)
  Sender: Public
  Company Number: None

PATIENT
  Age: 56 Year
  Sex: Male
  Weight: 73 kg

DRUGS (2)
  1. SULFAMETHIZOLE\TRIMETHOPRIM [Suspect]
     Active Substance: SULFAMETHIZOLE\TRIMETHOPRIM
     Indication: Prophylaxis
     Dates: start: 20240930, end: 20241013
  2. ACYCLOVIR [Suspect]
     Active Substance: ACYCLOVIR

REACTIONS (6)
  - Rash maculo-papular [None]
  - Arthralgia [None]
  - Burning sensation [None]
  - Rash pruritic [None]
  - Chills [None]
  - Tachycardia [None]

NARRATIVE: CASE EVENT DATE: 20241012
